FAERS Safety Report 23815272 (Version 3)
Quarter: 2025Q1

REPORT INFORMATION
  Report Type: Report from Study
  Country: US (occurrence: US)
  Receive Date: 20240503
  Receipt Date: 20250206
  Transmission Date: 20250409
  Serious: Yes (Other)
  Sender: TAKEDA
  Company Number: US-TAKEDA-US202023989

PATIENT
  Age: 56 Year
  Sex: Female

DRUGS (4)
  1. HUMAN IMMUNOGLOBULIN G [Suspect]
     Active Substance: HUMAN IMMUNOGLOBULIN G
     Indication: Primary immunodeficiency syndrome
     Dosage: 30 GRAM, Q3WEEKS
  2. HUMAN IMMUNOGLOBULIN G [Suspect]
     Active Substance: HUMAN IMMUNOGLOBULIN G
     Indication: Immunodeficiency common variable
  3. HUMAN IMMUNOGLOBULIN G [Suspect]
     Active Substance: HUMAN IMMUNOGLOBULIN G
     Dosage: 35 GRAM, Q3WEEKS
  4. HUMAN IMMUNOGLOBULIN G [Suspect]
     Active Substance: HUMAN IMMUNOGLOBULIN G

REACTIONS (18)
  - Autoimmune thyroiditis [Unknown]
  - Mast cell activation syndrome [Unknown]
  - Nephrolithiasis [Unknown]
  - Illness [Not Recovered/Not Resolved]
  - Immunoglobulins increased [Unknown]
  - Nasopharyngitis [Unknown]
  - Skin atrophy [Unknown]
  - Infection [Unknown]
  - Heavy metal increased [Unknown]
  - Obstruction [Unknown]
  - Seasonal allergy [Unknown]
  - Bronchitis [Unknown]
  - Increased tendency to bruise [Unknown]
  - Mycotic allergy [Unknown]
  - Feeling abnormal [Unknown]
  - Sinusitis [Unknown]
  - Cough [Unknown]
  - Hypersensitivity [Unknown]

NARRATIVE: CASE EVENT DATE: 20200929
